FAERS Safety Report 16266154 (Version 2)
Quarter: 2019Q2

REPORT INFORMATION
  Report Type: Spontaneous
  Country: JP (occurrence: JP)
  Receive Date: 20190502
  Receipt Date: 20190514
  Transmission Date: 20190711
  Serious: Yes (Other)
  Sender: FDA-Public Use
  Company Number: JP-ASTELLAS-2019US018169

PATIENT
  Age: 87 Year
  Sex: Male

DRUGS (1)
  1. ERLOTINIB [Suspect]
     Active Substance: ERLOTINIB
     Indication: LUNG NEOPLASM MALIGNANT
     Dosage: 50 MG, UNKNOWN FREQ. DOSE INTERVAL UNCERTAINTY
     Route: 048
     Dates: end: 20190415

REACTIONS (3)
  - General physical health deterioration [Unknown]
  - Abdominal pain [Unknown]
  - Diarrhoea [Recovered/Resolved]
